FAERS Safety Report 4811304-2 (Version None)
Quarter: 2005Q4

REPORT INFORMATION
  Report Type: 
  Country: None (occurrence: None)
  Receive Date: 20051026
  Receipt Date: 20051026
  Transmission Date: 20060501
  Serious: Yes (Hospitalization)
  Sender: FDA-Public Use
  Company Number: None

PATIENT
  Sex: Male
  Weight: 74 kg

DRUGS (1)
  1. SIMVASTATIN [Suspect]
     Indication: HYPERLIPIDAEMIA
     Dosage: 80 MG   QHS   PO
     Route: 048
     Dates: start: 20050711, end: 20050829

REACTIONS (3)
  - ARTHRALGIA [None]
  - JOINT SWELLING [None]
  - RASH [None]
